FAERS Safety Report 24294410 (Version 2)
Quarter: 2024Q3

REPORT INFORMATION
  Report Type: Report from Study
  Country: BR (occurrence: BR)
  Receive Date: 20240906
  Receipt Date: 20240926
  Transmission Date: 20241017
  Serious: Yes (Hospitalization, Other)
  Sender: JOHNSON AND JOHNSON
  Company Number: BR-JNJFOC-20240902445

PATIENT
  Age: 56 Year
  Sex: Female

DRUGS (8)
  1. GOLIMUMAB [Suspect]
     Active Substance: GOLIMUMAB
     Indication: Ankylosing spondylitis
     Route: 058
     Dates: start: 202301
  2. GOLIMUMAB [Suspect]
     Active Substance: GOLIMUMAB
  3. GOLIMUMAB [Suspect]
     Active Substance: GOLIMUMAB
  4. GOLIMUMAB [Suspect]
     Active Substance: GOLIMUMAB
  5. SIMPONI [Suspect]
     Active Substance: GOLIMUMAB
     Indication: Ankylosing spondylitis
     Route: 058
     Dates: start: 202301
  6. SIMPONI [Suspect]
     Active Substance: GOLIMUMAB
  7. SIMPONI [Suspect]
     Active Substance: GOLIMUMAB
  8. SIMPONI [Suspect]
     Active Substance: GOLIMUMAB

REACTIONS (8)
  - Femur fracture [Unknown]
  - Fall [Unknown]
  - Limb injury [Unknown]
  - Wrist fracture [Unknown]
  - Upper limb fracture [Unknown]
  - Postoperative wound infection [Unknown]
  - Paraesthesia [Unknown]
  - Therapeutic response delayed [Unknown]

NARRATIVE: CASE EVENT DATE: 20240101
